FAERS Safety Report 12729818 (Version 1)
Quarter: 2016Q3

REPORT INFORMATION
  Report Type: Spontaneous
  Country: DE (occurrence: DE)
  Receive Date: 20160909
  Receipt Date: 20160909
  Transmission Date: 20161109
  Serious: No
  Sender: FDA-Public Use
  Company Number: DE-PHOTOCURE ASA-HX-PM-DE-160800003

PATIENT
  Sex: Female

DRUGS (1)
  1. CYSVIEW [Suspect]
     Active Substance: HEXAMINOLEVULINATE HYDROCHLORIDE
     Dosage: UNSPECIFIED

REACTIONS (1)
  - Neuralgia [Unknown]
